FAERS Safety Report 9420060 (Version 1)
Quarter: 2013Q3

REPORT INFORMATION
  Report Type: Spontaneous
  Country: US (occurrence: None)
  Receive Date: 20130724
  Receipt Date: 20130724
  Transmission Date: 20140515
  Serious: Yes (Life-Threatening, Hospitalization)
  Sender: FDA-Public Use
  Company Number: None

PATIENT
  Age: 59 Year
  Sex: Male
  Weight: 64 kg

DRUGS (7)
  1. CEPHALEXIN-KEFLEX- [Suspect]
     Indication: CELLULITIS
     Route: 048
     Dates: start: 20130715, end: 20130716
  2. DIAZEPAM [Concomitant]
  3. DIPHENHYDRAMINE [Concomitant]
  4. FAMOTIDINE [Concomitant]
  5. OXAZEPAM [Concomitant]
  6. PROPRANOLOL [Concomitant]
  7. SPIRONOLACTONE [Concomitant]

REACTIONS (1)
  - Stevens-Johnson syndrome [None]
